FAERS Safety Report 15569331 (Version 1)
Quarter: 2018Q4

REPORT INFORMATION
  Report Type: Spontaneous
  Country: US (occurrence: US)
  Receive Date: 20181030
  Receipt Date: 20181030
  Transmission Date: 20190205
  Serious: Yes (Hospitalization)
  Sender: FDA-Public Use
  Company Number: None

PATIENT
  Age: 35 Year
  Sex: Female
  Weight: 101.25 kg

DRUGS (1)
  1. VIVITROL [Suspect]
     Active Substance: NALTREXONE
     Indication: ALCOHOLISM
     Dosage: ?          OTHER ROUTE:IM?
     Dates: start: 20180918, end: 20181016

REACTIONS (3)
  - Arthralgia [None]
  - Hypoxia [None]
  - Pneumonia [None]

NARRATIVE: CASE EVENT DATE: 20181017
